FAERS Safety Report 9507618 (Version 1)
Quarter: 2013Q3

REPORT INFORMATION
  Report Type: Spontaneous
  Country: FR (occurrence: FR)
  Receive Date: 20130909
  Receipt Date: 20130909
  Transmission Date: 20140515
  Serious: Yes (Hospitalization)
  Sender: FDA-Public Use
  Company Number: FR-SANOFI-AVENTIS-2013SA088315

PATIENT
  Age: 67 Year
  Sex: Male

DRUGS (9)
  1. FASTURTEC [Suspect]
     Indication: PROPHYLAXIS
     Route: 042
     Dates: start: 20130726, end: 20130726
  2. HOLOXAN [Suspect]
     Indication: B-CELL LYMPHOMA
     Dosage: DOSE:5 GRAM(S)/SQUARE METER
     Route: 042
     Dates: start: 20130726, end: 20130726
  3. ETOPOSIDE-TEVA [Suspect]
     Indication: B-CELL LYMPHOMA
     Route: 042
     Dates: start: 20130725, end: 20130725
  4. MABTHERA [Suspect]
     Indication: B-CELL LYMPHOMA
     Route: 042
     Dates: start: 20130725, end: 20130725
  5. CARBOPLATIN [Suspect]
     Indication: B-CELL LYMPHOMA
     Route: 042
     Dates: start: 20130726, end: 20130726
  6. UROMITEXAN [Suspect]
     Indication: PRODUCT USED FOR UNKNOWN INDICATION
     Dosage: DOSE:2 INJECTIONS
     Route: 042
     Dates: start: 20130726, end: 20130726
  7. CEFTRIAXONE PANPHARMA [Suspect]
     Indication: PRODUCT USED FOR UNKNOWN INDICATION
     Route: 042
     Dates: start: 20130726, end: 20130729
  8. AMIKACIN [Suspect]
     Indication: PRODUCT USED FOR UNKNOWN INDICATION
     Route: 042
     Dates: start: 20130726, end: 20130729
  9. ANTIEMETICS AND ANTINAUSEANTS [Concomitant]
     Indication: PROPHYLAXIS

REACTIONS (3)
  - Encephalopathy [Recovered/Resolved]
  - Somnolence [Recovered/Resolved]
  - Disturbance in attention [Recovered/Resolved]
